FAERS Safety Report 11798914 (Version 1)
Quarter: 2015Q4

REPORT INFORMATION
  Report Type: Spontaneous
  Country: US (occurrence: US)
  Receive Date: 20151203
  Receipt Date: 20151203
  Transmission Date: 20160305
  Serious: No
  Sender: FDA-Public Use
  Company Number: US-CELGENEUS-USA-2015103778

PATIENT
  Age: 50 Year
  Sex: Male

DRUGS (1)
  1. OTEZLA [Suspect]
     Active Substance: APREMILAST
     Indication: PSORIASIS
     Dosage: 60 MILLIGRAM
     Route: 048
     Dates: start: 20150911

REACTIONS (4)
  - Nausea [Recovered/Resolved]
  - Back pain [Not Recovered/Not Resolved]
  - Skin plaque [Not Recovered/Not Resolved]
  - Headache [Recovered/Resolved]

NARRATIVE: CASE EVENT DATE: 20151011
